FAERS Safety Report 24113882 (Version 1)
Quarter: 2024Q3

REPORT INFORMATION
  Report Type: Spontaneous
  Country: FR (occurrence: FR)
  Receive Date: 20240720
  Receipt Date: 20240720
  Transmission Date: 20241017
  Serious: Yes (Life-Threatening, Other)
  Sender: AUROBINDO
  Company Number: FR-AFSSAPS-PO2024000769

PATIENT
  Age: 19 Year
  Sex: Female

DRUGS (2)
  1. ALPRAZOLAM [Suspect]
     Active Substance: ALPRAZOLAM
     Indication: Toxicity to various agents
     Dosage: 9 DOSAGE FORM
     Route: 048
     Dates: start: 20240627, end: 20240627
  2. METOPROLOL [Suspect]
     Active Substance: METOPROLOL
     Indication: Toxicity to various agents
     Dosage: 9 DOSAGE FORM
     Route: 048
     Dates: start: 20240627, end: 20240627

REACTIONS (4)
  - Respiratory distress [Recovered/Resolved]
  - Coma [Recovered/Resolved]
  - Cardiogenic shock [Recovered/Resolved]
  - Intentional overdose [Recovered/Resolved]

NARRATIVE: CASE EVENT DATE: 20240627
